FAERS Safety Report 8239338-9 (Version None)
Quarter: 2012Q1

REPORT INFORMATION
  Report Type: 
  Country: None (occurrence: None)
  Receive Date: 20120326
  Receipt Date: 20120312
  Transmission Date: 20120608
  Serious: Yes (Hospitalization)
  Sender: FDA-Public Use
  Company Number: KAD201203-000183

PATIENT
  Age: 55 Year
  Sex: Male
  Weight: 72 kg

DRUGS (23)
  1. ACETAMINOPHEN [Concomitant]
  2. ZOLPIDEM TARTRATE [Concomitant]
  3. VICODIN [Concomitant]
  4. BISMUTH SUBSALICYLATE (BISMUTH SUBSALICYLATE) [Concomitant]
  5. LOCORTEN-VIOFORM (CLIOQUINOL, FLUMETASONE PIVALATE) [Concomitant]
  6. FLUOXINONIDE (FLUOCINONIDE) [Concomitant]
  7. PEGINTERFERON ALFA-2A [Suspect]
     Indication: HEPATITIS C
     Dosage: 180 MCG WEEKLY (73 DAYS), SUBCUTANEOUS, 135 MCG WEEKLY (46 DAYS), 180 MCG WEEKLY (138 DAYS)
     Route: 058
     Dates: start: 20100923, end: 20110208
  8. PEGINTERFERON ALFA-2A [Suspect]
     Indication: HEPATITIS C
     Dosage: 180 MCG WEEKLY (73 DAYS), SUBCUTANEOUS, 135 MCG WEEKLY (46 DAYS), 180 MCG WEEKLY (138 DAYS)
     Route: 058
     Dates: start: 20100525, end: 20100806
  9. PEGINTERFERON ALFA-2A [Suspect]
     Indication: HEPATITIS C
     Dosage: 180 MCG WEEKLY (73 DAYS), SUBCUTANEOUS, 135 MCG WEEKLY (46 DAYS), 180 MCG WEEKLY (138 DAYS)
     Route: 058
     Dates: start: 20100807, end: 20100922
  10. RITONAVIR [Suspect]
     Indication: HEPATITIS C
     Dosage: 100 MG DAILY, SOFT GELATIN CAPSULES (85 DAYS), ORAL
     Route: 048
     Dates: start: 20100525, end: 20100818
  11. DOZOL (PARACETAMOL, DIPHENHYDRAMINE HYDROCHLORIDE) [Concomitant]
  12. TRIAZOLAM [Concomitant]
  13. HYDROCORTONE [Concomitant]
  14. CITALOPRAM HYDROBROMIDE [Concomitant]
  15. CEPHALEXIN MONOHYDRATE [Concomitant]
  16. CHLORMEZANONE (CHLORMEZANONE) [Concomitant]
  17. IBUPROFEN [Concomitant]
  18. GABAPENTIN [Concomitant]
  19. CEFUROXIME AXETIL [Concomitant]
  20. PROPRANOLOL HYDROCHLORIDE [Concomitant]
  21. RIBAVIRIN [Suspect]
     Indication: HEPATITIS C
     Dosage: 1000 MG DAILY (246 DAYS), ORAL, 600 MG (10 DAYS)
     Route: 048
     Dates: start: 20110129, end: 20110208
  22. RIBAVIRIN [Suspect]
     Indication: HEPATITIS C
     Dosage: 1000 MG DAILY (246 DAYS), ORAL, 600 MG (10 DAYS)
     Route: 048
     Dates: start: 20100525, end: 20110126
  23. ABT-450 (ABT-450) [Suspect]
     Indication: HEPATITIS C
     Dosage: 100 MG DAILY (85 DAYS), ORAL
     Route: 048
     Dates: start: 20100525, end: 20100818

REACTIONS (17)
  - STOMATITIS [None]
  - WOUND INFECTION [None]
  - FATIGUE [None]
  - NEUTROPENIA [None]
  - CELLULITIS [None]
  - NIGHTMARE [None]
  - NAUSEA [None]
  - DEPRESSION [None]
  - HEADACHE [None]
  - INSOMNIA [None]
  - MYALGIA [None]
  - RASH [None]
  - DEHYDRATION [None]
  - ALOPECIA [None]
  - OTITIS MEDIA [None]
  - MIGRAINE [None]
  - FEELING OF BODY TEMPERATURE CHANGE [None]
